FAERS Safety Report 6898461-1 (Version None)
Quarter: 2010Q3

REPORT INFORMATION
  Report Type: 
  Country: None (occurrence: None)
  Receive Date: 20100802
  Receipt Date: 20071019
  Transmission Date: 20110219
  Serious: Yes (Other)
  Sender: FDA-Public Use
  Company Number: US-PFIZER INC-2007089388

PATIENT
  Sex: Female

DRUGS (2)
  1. LYRICA [Suspect]
     Dosage: IN THE MORNING
     Dates: start: 20070701
  2. AMBIEN [Suspect]
     Dates: start: 20070601

REACTIONS (1)
  - LOSS OF CONSCIOUSNESS [None]
